FAERS Safety Report 7713832-9 (Version None)
Quarter: 2011Q3

REPORT INFORMATION
  Report Type: 
  Country: None (occurrence: None)
  Receive Date: 20110826
  Receipt Date: 20110822
  Transmission Date: 20111222
  Serious: Yes (Death, Other)
  Sender: FDA-Public Use
  Company Number: PHHY2011GB76132

PATIENT
  Age: 12 Year
  Sex: Female

DRUGS (1)
  1. TACROLIMUS [Suspect]

REACTIONS (3)
  - MULTI-ORGAN FAILURE [None]
  - PUPILLARY REFLEX IMPAIRED [None]
  - DRUG LEVEL INCREASED [None]
